FAERS Safety Report 4455525-X (Version None)
Quarter: 2004Q3

REPORT INFORMATION
  Report Type: 
  Country: None (occurrence: None)
  Receive Date: 20040917
  Receipt Date: 20040904
  Transmission Date: 20050211
  Serious: Yes (Other)
  Sender: FDA-Public Use
  Company Number: 2004055467

PATIENT
  Sex: Female

DRUGS (2)
  1. FELDENE [Suspect]
     Indication: OSTEOARTHRITIS
  2. FELDENE [Suspect]
     Indication: RHEUMATOID ARTHRITIS

REACTIONS (3)
  - AUTOIMMUNE DISORDER [None]
  - COELIAC DISEASE [None]
  - RENAL VASCULITIS [None]
